FAERS Safety Report 25197387 (Version 1)
Quarter: 2025Q2

REPORT INFORMATION
  Report Type: Spontaneous
  Country: US (occurrence: US)
  Receive Date: 20250415
  Receipt Date: 20250415
  Transmission Date: 20250717
  Serious: Yes (Other)
  Sender: SANDOZ
  Company Number: US-SANDOZ-SDZ2025US022796

PATIENT
  Sex: Female
  Weight: 61.22 kg

DRUGS (2)
  1. COMBIPATCH [Suspect]
     Active Substance: ESTRADIOL\NORETHINDRONE ACETATE
     Indication: Hot flush
     Route: 062
     Dates: start: 2022
  2. COMBIPATCH [Suspect]
     Active Substance: ESTRADIOL\NORETHINDRONE ACETATE
     Indication: Osteopenia
     Route: 062
     Dates: start: 2012, end: 2022

REACTIONS (3)
  - Joint impingement [Recovered/Resolved]
  - Exostosis [Recovered/Resolved]
  - Cartilage injury [Recovered/Resolved]
